FAERS Safety Report 10057887 (Version 1)
Quarter: 2014Q2

REPORT INFORMATION
  Report Type: Spontaneous
  Country: US (occurrence: None)
  Receive Date: 20140403
  Receipt Date: 20140403
  Transmission Date: 20141212
  Serious: Yes (Hospitalization)
  Sender: FDA-Public Use
  Company Number: None

PATIENT
  Age: 80 Year
  Sex: Female
  Weight: 81.4 kg

DRUGS (2)
  1. CARBOPLATIN [Suspect]
  2. PACLITAXEL (TAXOL) [Suspect]

REACTIONS (7)
  - Chills [None]
  - Hypotension [None]
  - Tachycardia [None]
  - Urine output decreased [None]
  - Respiratory distress [None]
  - Intestinal perforation [None]
  - Communication disorder [None]
